FAERS Safety Report 17979722 (Version 2)
Quarter: 2020Q3

REPORT INFORMATION
  Report Type: Spontaneous
  Country: FR (occurrence: FR)
  Receive Date: 20200703
  Receipt Date: 20200904
  Transmission Date: 20201103
  Serious: Yes (Hospitalization)
  Sender: FDA-Public Use
  Company Number: FR-TEVA-2020-FR-1794207

PATIENT
  Age: 56 Year
  Sex: Female

DRUGS (1)
  1. LETROZOLE. [Suspect]
     Active Substance: LETROZOLE
     Indication: BREAST CANCER
     Dosage: 2.5 MILLIGRAM
     Route: 048
     Dates: start: 20200527, end: 20200604

REACTIONS (2)
  - Aortic thrombosis [Not Recovered/Not Resolved]
  - Renal infarct [Not Recovered/Not Resolved]

NARRATIVE: CASE EVENT DATE: 20200602
